FAERS Safety Report 16609836 (Version 1)
Quarter: 2019Q3

REPORT INFORMATION
  Report Type: Spontaneous
  Country: US (occurrence: US)
  Receive Date: 20190607
  Receipt Date: 20190607
  Transmission Date: 20191004
  Serious: Yes (Other)
  Sender: FDA-Public Use
  Company Number: None

PATIENT
  Age: 49 Year
  Sex: Female
  Weight: 77.11 kg

DRUGS (1)
  1. TRAZODONE [Suspect]
     Active Substance: TRAZODONE HYDROCHLORIDE
     Indication: SEROTONIN SYNDROME
     Route: 048
     Dates: start: 20190207, end: 20190520

REACTIONS (9)
  - Swelling [None]
  - Erythema [None]
  - Pyrexia [None]
  - Burning sensation [None]
  - Pain [None]
  - Hyperhidrosis [None]
  - Diarrhoea [None]
  - Serotonin syndrome [None]
  - Dizziness [None]

NARRATIVE: CASE EVENT DATE: 20190505
